FAERS Safety Report 5588133-8 (Version None)
Quarter: 2008Q1

REPORT INFORMATION
  Report Type: 
  Country: None (occurrence: None)
  Receive Date: 20080111
  Receipt Date: 20080104
  Transmission Date: 20080703
  Serious: Yes (Other)
  Sender: FDA-Public Use
  Company Number: US-JNJFOC-20080101287

PATIENT
  Age: 68 Year
  Sex: Male

DRUGS (3)
  1. INVEGA [Suspect]
     Indication: SCHIZOPHRENIA
     Route: 048
  2. DIABETES MEDICINE [Concomitant]
     Indication: DIABETES MELLITUS
  3. BLOOD PRESSURE MEDICINE [Concomitant]
     Indication: BLOOD PRESSURE

REACTIONS (1)
  - TARDIVE DYSKINESIA [None]
